FAERS Safety Report 7028432-6 (Version None)
Quarter: 2010Q4

REPORT INFORMATION
  Report Type: 
  Country: None (occurrence: None)
  Receive Date: 20101005
  Receipt Date: 20100928
  Transmission Date: 20110411
  Serious: Yes (Hospitalization)
  Sender: FDA-Public Use
  Company Number: BR-ROCHE-730055

PATIENT
  Sex: Female
  Weight: 60 kg

DRUGS (5)
  1. RIVOTRIL [Suspect]
     Indication: ANXIETY
     Dosage: 0.5 TAB/DAY AT NIGHT; START DATE: LONG TIME AGO
     Route: 048
  2. BONIVA [Suspect]
     Indication: OSTEOPOROSIS
     Route: 048
     Dates: start: 20070101, end: 20080101
  3. EUTHYROX [Concomitant]
     Indication: HYPOTHYROIDISM
     Dosage: I TAB/DAY IN THE MORNING
     Dates: start: 20020101
  4. AMITRIPTYLINE [Concomitant]
     Indication: ANXIETY
     Dosage: 1 CAP/ AT NIGHT; START DATE: LONG TIME AGO
  5. BONIVA [Concomitant]
     Dates: start: 20100713

REACTIONS (3)
  - INFLUENZA LIKE ILLNESS [None]
  - THYROID DISORDER [None]
  - THYROID NEOPLASM [None]
